FAERS Safety Report 7380186-X (Version None)
Quarter: 2011Q1

REPORT INFORMATION
  Report Type: 
  Country: None (occurrence: None)
  Receive Date: 20110329
  Receipt Date: 20101210
  Transmission Date: 20110831
  Serious: No
  Sender: FDA-Public Use
  Company Number: US-MYLANLABS-2010S1020567

PATIENT
  Age: 51 Year
  Sex: Female

DRUGS (3)
  1. ESTRADIOL [Suspect]
     Indication: HOT FLUSH
     Dosage: CHANGED Q WEEK
     Route: 062
     Dates: start: 20100901
  2. ESTRADIOL [Suspect]
     Indication: HORMONE REPLACEMENT THERAPY
     Dosage: CHANGED Q WEEK
     Route: 062
     Dates: start: 20100901
  3. ESTRADIOL [Suspect]
     Indication: MENOPAUSE
     Dosage: CHANGED Q WEEK
     Route: 062
     Dates: start: 20100901

REACTIONS (1)
  - APPLICATION SITE ERYTHEMA [None]
